FAERS Safety Report 8065690-3 (Version None)
Quarter: 2011Q4

REPORT INFORMATION
  Report Type: 
  Country: None (occurrence: None)
  Receive Date: 20111221
  Receipt Date: 20111011
  Transmission Date: 20120403
  Serious: Yes (Other)
  Sender: FDA-Public Use
  Company Number: PHHY2011US06070

PATIENT
  Age: 62 Year
  Sex: Male
  Weight: 67.6 kg

DRUGS (4)
  1. EXJADE [Suspect]
     Indication: MYELODYSPLASTIC SYNDROME
     Dosage: 2000MG,QD, 2000MG, DAILY, ORAL
     Route: 048
     Dates: start: 20071219
  2. EXJADE [Suspect]
     Indication: MYELODYSPLASTIC SYNDROME
     Dosage: 2000MG,QD, 2000MG, DAILY, ORAL
     Route: 048
     Dates: start: 20110119, end: 20110831
  3. LEVOTHYROXINE SODIUM [Concomitant]
  4. MULTI-VITAMINS [Concomitant]

REACTIONS (2)
  - BLOOD CREATININE INCREASED [None]
  - RENAL FAILURE [None]
